FAERS Safety Report 23209855 (Version 1)
Quarter: 2023Q4

REPORT INFORMATION
  Report Type: Spontaneous
  Country: IT (occurrence: IT)
  Receive Date: 20231121
  Receipt Date: 20231121
  Transmission Date: 20240110
  Serious: Yes (Other)
  Sender: FDA-Public Use
  Company Number: None

PATIENT
  Age: 69 Year
  Sex: Female

DRUGS (1)
  1. LENALIDOMIDE [Suspect]
     Active Substance: LENALIDOMIDE
     Indication: Follicular lymphoma
     Dosage: LA PAZIENTE ASSUMEVA LENALIDOMIDE 20 MG
     Route: 048
     Dates: start: 20231009, end: 20231029

REACTIONS (1)
  - Neuromuscular toxicity [Unknown]

NARRATIVE: CASE EVENT DATE: 20231001
